FAERS Safety Report 5911294-5 (Version None)
Quarter: 2008Q4

REPORT INFORMATION
  Report Type: 
  Country: None (occurrence: None)
  Receive Date: 20081007
  Receipt Date: 20080930
  Transmission Date: 20090506
  Serious: Yes (Hospitalization, Other)
  Sender: FDA-Public Use
  Company Number: US-B.I. PHARMACEUTICALS,INC./RIDGEFIELD-2008-BP-15225BP

PATIENT
  Age: 75 Year
  Sex: Female

DRUGS (3)
  1. SPIRIVA [Suspect]
     Indication: DYSPNOEA
     Dosage: 18MCG
     Route: 055
     Dates: start: 20040101
  2. VESICARE [Concomitant]
  3. LORAZEPAM [Concomitant]

REACTIONS (2)
  - LUNG NEOPLASM [None]
  - PNEUMONIA [None]
